FAERS Safety Report 23808836 (Version 2)
Quarter: 2024Q2

REPORT INFORMATION
  Report Type: Report from Study
  Country: TH (occurrence: TH)
  Receive Date: 20240502
  Receipt Date: 20240509
  Transmission Date: 20240715
  Serious: Yes (Hospitalization)
  Sender: FDA-Public Use
  Company Number: TH-002147023-NVSC2024TH045895

PATIENT
  Age: 10 Year
  Sex: Female
  Weight: 27 kg

DRUGS (28)
  1. ELTROMBOPAG OLAMINE [Suspect]
     Active Substance: ELTROMBOPAG OLAMINE
     Indication: Aplastic anaemia
     Dosage: 2 DOSAGE FORM, QD BEFORE BREAKFAST
     Route: 048
     Dates: start: 20240131
  2. ELTROMBOPAG OLAMINE [Suspect]
     Active Substance: ELTROMBOPAG OLAMINE
     Dosage: 2 DOSAGE FORM, QD AFTER MEAL IN THE MORNING
     Route: 048
  3. ELTROMBOPAG OLAMINE [Suspect]
     Active Substance: ELTROMBOPAG OLAMINE
     Dosage: 14 DOSAGE FORM
     Route: 048
     Dates: start: 20240207
  4. ELTROMBOPAG OLAMINE [Suspect]
     Active Substance: ELTROMBOPAG OLAMINE
     Dosage: 25 MG (2 TABLETS), QD
     Route: 048
     Dates: start: 20240209
  5. ELTROMBOPAG OLAMINE [Suspect]
     Active Substance: ELTROMBOPAG OLAMINE
     Dosage: 14 DOSAGE FORM
     Route: 048
     Dates: start: 20240221
  6. ELTROMBOPAG OLAMINE [Suspect]
     Active Substance: ELTROMBOPAG OLAMINE
     Dosage: 14 DOSAGE FORM
     Route: 048
     Dates: start: 20240228
  7. ELTROMBOPAG OLAMINE [Suspect]
     Active Substance: ELTROMBOPAG OLAMINE
     Dosage: 14 DOSAGE FORM
     Route: 048
  8. ELTROMBOPAG OLAMINE [Suspect]
     Active Substance: ELTROMBOPAG OLAMINE
     Dosage: 25 MG
     Route: 048
  9. CYCLOSPORINE [Suspect]
     Active Substance: CYCLOSPORINE
     Indication: Aplastic anaemia
     Dosage: 5 CC, BID
     Route: 065
     Dates: start: 20240201
  10. CYCLOSPORINE [Suspect]
     Active Substance: CYCLOSPORINE
     Dosage: 1.9 CC, BID
     Route: 065
  11. CYCLOSPORINE [Suspect]
     Active Substance: CYCLOSPORINE
     Dosage: 0.9 ML, BID
     Route: 048
  12. CYCLOSPORINE [Suspect]
     Active Substance: CYCLOSPORINE
     Dosage: 5 MG/KG, QD (KEEP LEVEL 200-400 MCG/L)
     Route: 065
  13. DEFERASIROX [Suspect]
     Active Substance: DEFERASIROX
     Indication: Product used for unknown indication
     Dosage: 250 MG (2 TABLETS)  QD
     Route: 065
  14. CEFTAZIDIME [Concomitant]
     Active Substance: CEFTAZIDIME
     Indication: Product used for unknown indication
     Dosage: 1 G, Q8H (1GM + 5 PERCENT DW (100 MKDAY) UP TO 50 ML IV DRIP IN 1 HR Q 8 HR)
     Route: 042
     Dates: start: 20240219, end: 20240301
  15. CIPROFLOXACIN [Concomitant]
     Active Substance: CIPROFLOXACIN
     Indication: Product used for unknown indication
     Dosage: 1.5 DOSAGE FORM (TABLET), BID
     Route: 048
     Dates: start: 20240219, end: 20240311
  16. CLOXACILLIN [Concomitant]
     Active Substance: CLOXACILLIN
     Indication: Product used for unknown indication
     Dosage: 1400 MG + 5 PERCENT DW N (200MKDAY) UP TO 100 ML IV DRIP IN 1 HR Q 8 HR
     Route: 042
     Dates: start: 20240214
  17. CLOXACILLIN [Concomitant]
     Active Substance: CLOXACILLIN
     Dosage: 1400 MG, Q6H
     Route: 042
     Dates: end: 20240227
  18. FOLIC ACID [Concomitant]
     Active Substance: FOLIC ACID
     Indication: Product used for unknown indication
     Dosage: 1 DOSAGE FORM, QD
     Route: 048
     Dates: start: 20231009
  19. MTV [Concomitant]
     Indication: Product used for unknown indication
     Dosage: 1 DOSAGE FORM, QD
     Route: 048
     Dates: start: 20231009
  20. PREDNISOLONE [Concomitant]
     Active Substance: PREDNISOLONE
     Indication: Product used for unknown indication
     Dosage: 4 DOSAGE FORM, BID
     Route: 048
     Dates: start: 20240209, end: 20240210
  21. PREDNISOLONE [Concomitant]
     Active Substance: PREDNISOLONE
     Dosage: 3 DOSAGE FORM, QD
     Route: 048
     Dates: start: 20240211, end: 20240212
  22. PREDNISOLONE [Concomitant]
     Active Substance: PREDNISOLONE
     Dosage: 1.5 DOSAGE FORM, BID
     Route: 048
     Dates: start: 20240213, end: 20240214
  23. PREDNISOLONE [Concomitant]
     Active Substance: PREDNISOLONE
     Dosage: 1 DOSAGE FORM, BID
     Route: 048
     Dates: start: 20240215, end: 20240219
  24. PREDNISOLONE [Concomitant]
     Active Substance: PREDNISOLONE
     Dosage: 1 DOSAGE FORM, QD
     Route: 048
     Dates: start: 20240220, end: 20240220
  25. DICLOXACILLIN [Concomitant]
     Active Substance: DICLOXACILLIN
     Indication: Product used for unknown indication
     Dosage: 1 DOSAGE FORM, QID
     Route: 048
     Dates: start: 20240227, end: 20240311
  26. MEROPENEM [Concomitant]
     Active Substance: MEROPENEM
     Indication: Product used for unknown indication
     Dosage: 1100 MG, Q8H
     Route: 041
     Dates: start: 20240214, end: 20240219
  27. PIPERACILLIN SODIUM\TAZOBACTAM SODIUM [Concomitant]
     Active Substance: PIPERACILLIN SODIUM\TAZOBACTAM SODIUM
     Indication: Product used for unknown indication
     Dosage: 370 MG, Q8H
     Route: 041
     Dates: start: 20240213, end: 20240214
  28. METHYLPREDNISOLONE [Concomitant]
     Active Substance: METHYLPREDNISOLONE
     Indication: Product used for unknown indication
     Dosage: 13 MG, Q6H
     Route: 042
     Dates: start: 20240201, end: 20240208

REACTIONS (2)
  - Joint effusion [Recovered/Resolved]
  - Pain in extremity [Recovered/Resolved]

NARRATIVE: CASE EVENT DATE: 20240212
